FAERS Safety Report 9329292 (Version 1)
Quarter: 2013Q2

REPORT INFORMATION
  Report Type: Spontaneous
  Country: FR (occurrence: FR)
  Receive Date: 20130604
  Receipt Date: 20130604
  Transmission Date: 20140414
  Serious: Yes (Other)
  Sender: FDA-Public Use
  Company Number: FR-GLAXOSMITHKLINE-B0894974A

PATIENT
  Age: 52 Year
  Sex: Female

DRUGS (7)
  1. TYVERB [Suspect]
     Indication: BREAST CANCER METASTATIC
     Route: 048
     Dates: start: 201004
  2. HERCEPTIN [Concomitant]
     Indication: BREAST CANCER METASTATIC
     Route: 042
     Dates: start: 2005
  3. DOCETAXEL [Concomitant]
     Indication: BREAST CANCER METASTATIC
     Dates: start: 2005
  4. NAVELBINE [Concomitant]
     Indication: BREAST CANCER METASTATIC
  5. TAXOL [Concomitant]
     Indication: BREAST CANCER METASTATIC
  6. SYMBICORT [Concomitant]
  7. VENTOLINE [Concomitant]

REACTIONS (8)
  - Toxic skin eruption [Not Recovered/Not Resolved]
  - Asthma [Not Recovered/Not Resolved]
  - Eczema [Not Recovered/Not Resolved]
  - Dyspnoea [Not Recovered/Not Resolved]
  - Cough [Not Recovered/Not Resolved]
  - Rales [Not Recovered/Not Resolved]
  - Oxygen saturation decreased [Not Recovered/Not Resolved]
  - Obstructive airways disorder [Not Recovered/Not Resolved]
